FAERS Safety Report 9195837 (Version 1)
Quarter: 2013Q1

REPORT INFORMATION
  Report Type: Spontaneous
  Country: US (occurrence: None)
  Receive Date: 20130325
  Receipt Date: 20130325
  Transmission Date: 20140127
  Serious: Yes (Other)
  Sender: FDA-Public Use
  Company Number: 2013PROUSA02617

PATIENT
  Age: 50 Year
  Sex: Male

DRUGS (2)
  1. PROVENGE (SIPULEUCEL-T) SUSPENSION,  250ML [Suspect]
     Indication: PROSTATE CANCER METASTATIC
     Dosage: 250 ML, SINGLE, INTRAVENOUS
     Route: 042
     Dates: start: 20130207, end: 20130207
  2. CHEMOTHERAPEUTICS (CHEMOTHERAPEUTICS) [Suspect]
     Indication: NEOPLASM MALIGNANT

REACTIONS (3)
  - Metastatic neoplasm [None]
  - Nausea [None]
  - Vomiting [None]
